FAERS Safety Report 23272853 (Version 1)
Quarter: 2023Q4

REPORT INFORMATION
  Report Type: Spontaneous
  Country: US (occurrence: None)
  Receive Date: 20231206
  Receipt Date: 20231206
  Transmission Date: 20240109
  Serious: Yes (Hospitalization)
  Sender: FDA-Public Use
  Company Number: None

PATIENT
  Age: 56 Year
  Sex: Female
  Weight: 76.5 kg

DRUGS (1)
  1. SEMAGLUTIDE [Suspect]
     Active Substance: SEMAGLUTIDE
     Dosage: OTHER FREQUENCY : 1X WEEK;?
     Route: 058

REACTIONS (4)
  - Intestinal obstruction [None]
  - Vomiting [None]
  - Product compounding quality issue [None]
  - Post procedural complication [None]

NARRATIVE: CASE EVENT DATE: 20230923
